FAERS Safety Report 6072074-6 (Version None)
Quarter: 2009Q1

REPORT INFORMATION
  Report Type: 
  Country: None (occurrence: None)
  Receive Date: 20090210
  Receipt Date: 20090130
  Transmission Date: 20090719
  Serious: Yes (Hospitalization)
  Sender: FDA-Public Use
  Company Number: US-AVENTIS-200910930US

PATIENT
  Sex: Male
  Weight: 120.45 kg

DRUGS (7)
  1. LOVENOX [Suspect]
     Indication: DEEP VEIN THROMBOSIS
     Dates: start: 20090128
  2. LOVENOX [Suspect]
  3. LOVENOX [Suspect]
     Indication: ARTERIAL THROMBOSIS LIMB
     Dates: start: 20090128
  4. LOVENOX [Suspect]
  5. COUMADIN [Concomitant]
     Indication: DEEP VEIN THROMBOSIS
     Dosage: DOSE: UNK
     Dates: start: 20090128
  6. COUMADIN [Concomitant]
     Indication: ARTERIAL THROMBOSIS LIMB
     Dosage: DOSE: UNK
     Dates: start: 20090128
  7. SYNTHROID [Concomitant]
     Dosage: DOSE: UNK

REACTIONS (6)
  - ARTERIAL THROMBOSIS LIMB [None]
  - DEEP VEIN THROMBOSIS [None]
  - ERYTHEMA [None]
  - FEELING HOT [None]
  - PYREXIA [None]
  - THROMBOPHLEBITIS [None]
